FAERS Safety Report 4543363-9 (Version None)
Quarter: 2005Q1

REPORT INFORMATION
  Report Type: 
  Country: None (occurrence: None)
  Receive Date: 20050103
  Receipt Date: 20041207
  Transmission Date: 20050727
  Serious: Yes (Death)
  Sender: FDA-Public Use
  Company Number: BR-BRISTOL-MYERS SQUIBB COMPANY-12789467

PATIENT
  Age: 40 Year
  Sex: Male
  Weight: 90 kg

DRUGS (5)
  1. ABILIFY [Suspect]
     Indication: SCHIZOPHRENIA
     Route: 048
     Dates: start: 20040905, end: 20040905
  2. LEVOMEPROMAZINE [Suspect]
  3. HALOPERIDOL [Concomitant]
  4. CHLORPROMAZINE [Concomitant]
  5. BIPERIDENE [Concomitant]

REACTIONS (3)
  - ACUTE MYOCARDIAL INFARCTION [None]
  - DYSPNOEA [None]
  - MYOCARDIAL INFARCTION [None]
